FAERS Safety Report 16524568 (Version 3)
Quarter: 2020Q3

REPORT INFORMATION
  Report Type: Spontaneous
  Country: GB (occurrence: GB)
  Receive Date: 20190703
  Receipt Date: 20200408
  Transmission Date: 20201105
  Serious: Yes (Other)
  Sender: FDA-Public Use
  Company Number: GB-009507513-1907GBR001523

PATIENT
  Age: 69 Year
  Sex: Female
  Weight: 56.24 kg

DRUGS (12)
  1. IBANDRONIC ACID. [Suspect]
     Active Substance: IBANDRONIC ACID
     Dosage: 150 MILLIGRAM, QM
     Route: 048
     Dates: start: 20190601, end: 20190606
  2. PERINDOPRIL [Concomitant]
     Active Substance: PERINDOPRIL
  3. VITAMIN D (UNSPECIFIED) [Concomitant]
     Active Substance: VITAMIN D NOS
     Dosage: 1000 IU (INTERNATIONAL UNIT), QD
  4. CETIRIZINE HYDROCHLORIDE. [Concomitant]
     Active Substance: CETIRIZINE HYDROCHLORIDE
     Dosage: 10 MILLIGRAM, QD
  5. PREDNISOLONE. [Concomitant]
     Active Substance: PREDNISOLONE
     Dosage: LONG TERM
  6. RISEDRONATE SODIUM. [Suspect]
     Active Substance: RISEDRONATE SODIUM
     Dosage: SORRY, CAN^T REMEMBER
     Route: 048
     Dates: end: 20190413
  7. ALENDRONATE SODIUM. [Suspect]
     Active Substance: ALENDRONATE SODIUM
     Indication: BONE DENSITY DECREASED
     Dosage: 70 MILLIGRAM, QW
     Route: 048
     Dates: start: 20181216, end: 20190324
  8. VITAMINS (UNSPECIFIED) [Concomitant]
     Active Substance: VITAMINS
  9. FLUOXETINE [Concomitant]
     Active Substance: FLUOXETINE HYDROCHLORIDE
     Dosage: 20 MILLIGRAM, QD
  10. MAGNESIUM (UNSPECIFIED) [Concomitant]
     Active Substance: MAGNESIUM
     Dosage: 400 MILLIGRAM, QD
  11. CALCIUM (UNSPECIFIED) [Concomitant]
     Active Substance: CALCIUM
     Dosage: 1200 MILLIGRAM, QD
  12. AMLODIPINE [Concomitant]
     Active Substance: AMLODIPINE BESYLATE
     Dosage: 10 MILLIGRAM, QD

REACTIONS (26)
  - Fatigue [Recovered/Resolved with Sequelae]
  - Pyrexia [Recovered/Resolved with Sequelae]
  - Muscular weakness [Not Recovered/Not Resolved]
  - Peripheral swelling [Not Recovered/Not Resolved]
  - Diarrhoea [Recovered/Resolved with Sequelae]
  - Balance disorder [Recovered/Resolved with Sequelae]
  - Headache [Recovered/Resolved with Sequelae]
  - Arthralgia [Recovered/Resolved with Sequelae]
  - Feeling abnormal [Recovered/Resolved with Sequelae]
  - Toothache [Recovered/Resolved with Sequelae]
  - Increased viscosity of upper respiratory secretion [Recovered/Resolved with Sequelae]
  - Nausea [Recovered/Resolved with Sequelae]
  - Influenza like illness [Recovered/Resolved with Sequelae]
  - Impaired healing [Not Recovered/Not Resolved]
  - Vomiting [Recovered/Resolved with Sequelae]
  - Periorbital swelling [Recovered/Resolved with Sequelae]
  - Pain in extremity [Not Recovered/Not Resolved]
  - Fatigue [Not Recovered/Not Resolved]
  - Chills [Recovered/Resolved with Sequelae]
  - Joint swelling [Not Recovered/Not Resolved]
  - Hallucination [Recovered/Resolved with Sequelae]
  - Insomnia [Recovered/Resolved with Sequelae]
  - Bone pain [Unknown]
  - Pain [Unknown]
  - Dysstasia [Recovered/Resolved with Sequelae]
  - Eye pain [Recovered/Resolved with Sequelae]

NARRATIVE: CASE EVENT DATE: 20181218
